FAERS Safety Report 8924859 (Version 1)
Quarter: 2012Q4

REPORT INFORMATION
  Report Type: 
  Country: US (occurrence: US)
  Receive Date: 20121126
  Receipt Date: 20121126
  Transmission Date: 20130627
  Serious: Yes (Hospitalization)
  Sender: FDA-Public Use
  Company Number: US-BAYER-2012-121433

PATIENT
  Age: 21 Year
  Sex: Female
  Weight: 95.69 kg

DRUGS (9)
  1. YASMIN [Suspect]
  2. TYLENOL [Concomitant]
     Indication: PAIN
     Dosage: UNK
     Dates: start: 20071005
  3. IBUPROFEN [Concomitant]
     Indication: PAIN
     Dosage: UNK
     Dates: start: 20071005
  4. OXYCODONE [Concomitant]
     Indication: PAIN
     Dosage: 5 mg, 1 to 2 every 6 to 8 hours
     Dates: start: 20071005
  5. PRENATAL VITAMINS [Concomitant]
     Dosage: UNK
     Dates: start: 20071005
  6. AMOXICILLIN W/CLAVULANATE POTASSIUM [Concomitant]
     Dosage: 875-125 mg
  7. AMOXICILLIN [Concomitant]
     Dosage: 500 mg, UNK
  8. DOXIDAN [DANTRON,DOCUSATE CALCIUM] [Concomitant]
     Indication: CONSTIPATION
  9. MILK OF MAGNESIA [Concomitant]
     Indication: CONSTIPATION

REACTIONS (2)
  - Pulmonary embolism [None]
  - Deep vein thrombosis [None]
